FAERS Safety Report 5872936-6 (Version None)
Quarter: 2008Q3

REPORT INFORMATION
  Report Type: 
  Country: None (occurrence: None)
  Receive Date: 20080905
  Receipt Date: 20080825
  Transmission Date: 20090109
  Serious: Yes (Other)
  Sender: FDA-Public Use
  Company Number: US-PFIZER INC-2008071015

PATIENT
  Sex: Female

DRUGS (2)
  1. DILANTIN [Suspect]
  2. DEPAKOTE [Suspect]

REACTIONS (3)
  - MYOCARDIAL INFARCTION [None]
  - OVERDOSE [None]
  - SWELLING [None]
